FAERS Safety Report 16794338 (Version 3)
Quarter: 2019Q4

REPORT INFORMATION
  Report Type: Spontaneous
  Country: US (occurrence: US)
  Receive Date: 20190911
  Receipt Date: 20191210
  Transmission Date: 20200122
  Serious: Yes (Other)
  Sender: FDA-Public Use
  Company Number: US-ASTRAZENECA-2018SF65525

PATIENT
  Age: 70 Year
  Sex: Male

DRUGS (31)
  1. NEXIUM [Suspect]
     Active Substance: ESOMEPRAZOLE MAGNESIUM
     Indication: GASTROOESOPHAGEAL REFLUX DISEASE
     Route: 048
     Dates: start: 20130823, end: 20160628
  2. PANTOPRAZOLE [Suspect]
     Active Substance: PANTOPRAZOLE
     Indication: GASTROOESOPHAGEAL REFLUX DISEASE
     Route: 065
     Dates: start: 20130212, end: 2016
  3. LISINOPRIL. [Concomitant]
     Active Substance: LISINOPRIL
     Indication: DRUG THERAPY
     Route: 065
     Dates: start: 2017
  4. MELATONIN [Concomitant]
     Active Substance: MELATONIN
     Indication: SLEEP DISORDER
     Route: 065
     Dates: start: 2017, end: 2019
  5. CIPROFLOXACIN. [Concomitant]
     Active Substance: CIPROFLOXACIN
     Indication: ANTIBIOTIC THERAPY
     Route: 065
     Dates: start: 2013, end: 2014
  6. GEODON [Concomitant]
     Active Substance: ZIPRASIDONE HYDROCHLORIDE\ZIPRASIDONE MESYLATE
     Route: 065
  7. MELOXICAM. [Concomitant]
     Active Substance: MELOXICAM
     Indication: ANALGESIC INTERVENTION SUPPORTIVE THERAPY
     Route: 065
     Dates: start: 2013, end: 2018
  8. NEXIUM [Suspect]
     Active Substance: ESOMEPRAZOLE MAGNESIUM
     Indication: GASTROOESOPHAGEAL REFLUX DISEASE
     Route: 048
     Dates: start: 20130618
  9. CYTOTEC [Concomitant]
     Active Substance: MISOPROSTOL
     Route: 065
  10. ATORVASTATIN [Concomitant]
     Active Substance: ATORVASTATIN
     Indication: BLOOD CHOLESTEROL ABNORMAL
     Route: 065
     Dates: start: 2013
  11. PRIMIDONE. [Concomitant]
     Active Substance: PRIMIDONE
     Route: 065
  12. PREVACID [Suspect]
     Active Substance: LANSOPRAZOLE
     Route: 065
  13. ESCITALOPRAM [Concomitant]
     Active Substance: ESCITALOPRAM OXALATE
     Route: 065
  14. FISH OIL [Concomitant]
     Active Substance: FISH OIL
     Indication: NUTRITIONAL SUPPLEMENTATION
     Route: 065
     Dates: start: 2016
  15. VITAMIN D3 [Concomitant]
     Active Substance: CHOLECALCIFEROL
     Indication: VITAMIN D
     Route: 065
     Dates: start: 2017
  16. NEXIUM [Suspect]
     Active Substance: ESOMEPRAZOLE MAGNESIUM
     Indication: GASTROOESOPHAGEAL REFLUX DISEASE
     Route: 048
     Dates: start: 20130823, end: 20160628
  17. PANTOPRAZOLE [Suspect]
     Active Substance: PANTOPRAZOLE
     Indication: GASTROOESOPHAGEAL REFLUX DISEASE
     Route: 065
     Dates: start: 20130426, end: 2016
  18. ZIPRASIDONE. [Concomitant]
     Active Substance: ZIPRASIDONE
     Route: 065
  19. SKELAXIN [Concomitant]
     Active Substance: METAXALONE
     Route: 065
  20. GABAPENTIN. [Concomitant]
     Active Substance: GABAPENTIN
     Route: 065
  21. MILK OF MAGNESIA [Concomitant]
     Active Substance: MAGNESIUM HYDROXIDE
     Dosage: 2 TABLESPOONS 3 TIMES A DAY
     Route: 065
     Dates: start: 2008, end: 2008
  22. LAMOTRIGINE. [Concomitant]
     Active Substance: LAMOTRIGINE
     Route: 065
  23. LINZESS [Concomitant]
     Active Substance: LINACLOTIDE
     Route: 065
  24. METOPROLOL SUCCINATE. [Concomitant]
     Active Substance: METOPROLOL SUCCINATE
     Route: 065
  25. NAPROXEN. [Concomitant]
     Active Substance: NAPROXEN
     Indication: PAIN
     Route: 065
     Dates: start: 2013, end: 2014
  26. SYNTHROID [Concomitant]
     Active Substance: LEVOTHYROXINE SODIUM
     Route: 065
  27. TRAMADOL. [Concomitant]
     Active Substance: TRAMADOL
     Indication: PAIN
     Route: 065
     Dates: start: 2014
  28. TYLENOL [Concomitant]
     Active Substance: ACETAMINOPHEN
     Indication: PAIN
     Route: 065
     Dates: start: 20190917
  29. NEXIUM [Suspect]
     Active Substance: ESOMEPRAZOLE MAGNESIUM
     Indication: GASTROOESOPHAGEAL REFLUX DISEASE
     Route: 048
     Dates: start: 20130823, end: 20160628
  30. FINASTERIDE. [Concomitant]
     Active Substance: FINASTERIDE
     Route: 065
  31. AMOXICILLIN. [Concomitant]
     Active Substance: AMOXICILLIN
     Indication: ANTIBIOTIC THERAPY
     Route: 065
     Dates: start: 2013, end: 2017

REACTIONS (5)
  - Renal impairment [Unknown]
  - Rebound acid hypersecretion [Unknown]
  - Renal injury [Unknown]
  - Chronic kidney disease [Not Recovered/Not Resolved]
  - Renal failure [Not Recovered/Not Resolved]

NARRATIVE: CASE EVENT DATE: 2014
